FAERS Safety Report 7030719-8 (Version None)
Quarter: 2010Q4

REPORT INFORMATION
  Report Type: 
  Country: None (occurrence: None)
  Receive Date: 20101006
  Receipt Date: 20100928
  Transmission Date: 20110411
  Serious: Yes (Other)
  Sender: FDA-Public Use
  Company Number: US-BAYER-201020901BCC

PATIENT
  Age: 13 Year
  Sex: Female
  Weight: 73 kg

DRUGS (1)
  1. ALEVE (CAPLET) [Suspect]
     Indication: SUICIDAL IDEATION
     Dosage: 5 TO 10 CAPLETS
     Route: 048
     Dates: start: 20100927

REACTIONS (2)
  - DIZZINESS [None]
  - SOMNOLENCE [None]
